FAERS Safety Report 7157033-4 (Version None)
Quarter: 2010Q4

REPORT INFORMATION
  Report Type: 
  Country: None (occurrence: None)
  Receive Date: 20101214
  Receipt Date: 20100122
  Transmission Date: 20110411
  Serious: No
  Sender: FDA-Public Use
  Company Number: US-ASTRAZENECA-2010SE03102

PATIENT
  Age: 74 Year
  Sex: Female
  Weight: 47.6 kg

DRUGS (2)
  1. CRESTOR [Suspect]
     Indication: BLOOD CHOLESTEROL
     Route: 048
  2. CRESTOR [Suspect]
     Route: 048
     Dates: start: 20100116

REACTIONS (1)
  - SCIATICA [None]
